FAERS Safety Report 23768352 (Version 1)
Quarter: 2024Q2

REPORT INFORMATION
  Report Type: Spontaneous
  Country: US (occurrence: None)
  Receive Date: 20240419
  Receipt Date: 20240419
  Transmission Date: 20240716
  Serious: Yes (Other)
  Sender: FDA-Public Use
  Company Number: None

PATIENT
  Age: 42 Year
  Sex: Female
  Weight: 60.75 kg

DRUGS (1)
  1. BOTOX [Suspect]
     Active Substance: ONABOTULINUMTOXINA
     Indication: Skin cosmetic procedure

REACTIONS (17)
  - Dyspnoea [None]
  - Dyspnoea [None]
  - Dizziness [None]
  - Dysphagia [None]
  - Memory impairment [None]
  - Disorientation [None]
  - Heart rate increased [None]
  - Tremor [None]
  - Electric shock sensation [None]
  - Disturbance in attention [None]
  - Aphasia [None]
  - Monoplegia [None]
  - Monoplegia [None]
  - Hemihypoaesthesia [None]
  - Paraesthesia [None]
  - Urticaria [None]
  - Adverse drug reaction [None]

NARRATIVE: CASE EVENT DATE: 20230117
